FAERS Safety Report 15306321 (Version 3)
Quarter: 2019Q2

REPORT INFORMATION
  Report Type: Report from Study
  Country: ES (occurrence: ES)
  Receive Date: 20180822
  Receipt Date: 20190608
  Transmission Date: 20190711
  Serious: Yes (Other)
  Sender: FDA-Public Use
  Company Number: ES-TEVA-2018-ES-852024

PATIENT
  Sex: Male

DRUGS (1)
  1. COPAXONE [Suspect]
     Active Substance: GLATIRAMER ACETATE
     Indication: RELAPSING-REMITTING MULTIPLE SCLEROSIS
     Route: 058
     Dates: start: 20150101

REACTIONS (8)
  - Myalgia [Recovering/Resolving]
  - Ill-defined disorder [Unknown]
  - Drug ineffective [Unknown]
  - Fatigue [Recovering/Resolving]
  - Multiple sclerosis [Not Recovered/Not Resolved]
  - Immobile [Recovering/Resolving]
  - Pain [Recovering/Resolving]
  - Clumsiness [Recovering/Resolving]

NARRATIVE: CASE EVENT DATE: 2018
